FAERS Safety Report 18501601 (Version 1)
Quarter: 2020Q4

REPORT INFORMATION
  Report Type: Spontaneous
  Country: CA (occurrence: CA)
  Receive Date: 20201113
  Receipt Date: 20201113
  Transmission Date: 20210114
  Serious: Yes (Disabling)
  Sender: FDA-Public Use
  Company Number: CA-BAUSCH-BL-2020-032006

PATIENT
  Age: 34 Year
  Sex: Female

DRUGS (1)
  1. JUBLIA [Suspect]
     Active Substance: EFINACONAZOLE
     Indication: PRODUCT USED FOR UNKNOWN INDICATION
     Dosage: FOR 48 WEEKS, DAILY
     Route: 065

REACTIONS (2)
  - Disability [Unknown]
  - Inability to afford medication [Unknown]
